FAERS Safety Report 10384969 (Version 2)
Quarter: 2014Q3

REPORT INFORMATION
  Report Type: Report from Study
  Country: US (occurrence: US)
  Receive Date: 20140814
  Receipt Date: 20140827
  Transmission Date: 20150326
  Serious: Yes (Hospitalization)
  Sender: FDA-Public Use
  Company Number: US-ACTELION-A-NJ2014-103472

PATIENT
  Age: 13 Month
  Sex: Male

DRUGS (5)
  1. PRILOSEC [Concomitant]
     Active Substance: OMEPRAZOLE MAGNESIUM
     Dosage: 12.4 MG, BID
     Dates: start: 20130825
  2. POLYVISOL [Concomitant]
     Dosage: 0.5 ML, QD
     Dates: start: 20130724
  3. ERYTHROMYCIN ETHYL SUCCINATE [Concomitant]
     Dosage: 20 MG, BID
     Dates: start: 20140731
  4. REMODULIN [Concomitant]
     Active Substance: TREPROSTINIL
  5. TRACLEER [Suspect]
     Active Substance: BOSENTAN\BOSENTAN MONOHYDRATE
     Indication: PULMONARY ARTERIAL HYPERTENSION
     Dosage: 9 MG, BID
     Route: 048
     Dates: start: 20130715

REACTIONS (3)
  - Diaphragmatic hernia [Recovering/Resolving]
  - Vomiting [Recovering/Resolving]
  - Opisthotonus [Recovering/Resolving]

NARRATIVE: CASE EVENT DATE: 20140724
